FAERS Safety Report 25663185 (Version 1)
Quarter: 2025Q3

REPORT INFORMATION
  Report Type: Report from Study
  Country: CA (occurrence: CA)
  Receive Date: 20250811
  Receipt Date: 20250811
  Transmission Date: 20251020
  Serious: Yes (Hospitalization)
  Sender: CSL BEHRING
  Company Number: CA-BEH-2024172708

PATIENT
  Age: 64 Year
  Sex: Female
  Weight: 74.376 kg

DRUGS (17)
  1. HIZENTRA [Suspect]
     Active Substance: HUMAN IMMUNOGLOBULIN G
     Indication: Secondary immunodeficiency
     Dosage: 8 G, QW
     Route: 065
     Dates: start: 20220123
  2. HIZENTRA [Suspect]
     Active Substance: HUMAN IMMUNOGLOBULIN G
     Indication: Secondary immunodeficiency
     Dosage: 8 G, QW
     Route: 065
     Dates: start: 20220123
  3. HIZENTRA [Suspect]
     Active Substance: HUMAN IMMUNOGLOBULIN G
     Dosage: 8 G, QW
     Route: 058
     Dates: start: 20220123
  4. HIZENTRA [Suspect]
     Active Substance: HUMAN IMMUNOGLOBULIN G
     Dosage: 8 G, QW
     Route: 058
     Dates: start: 20220123
  5. SYNTHROID [Concomitant]
     Active Substance: LEVOTHYROXINE SODIUM
     Indication: Product used for unknown indication
     Route: 065
  6. VITAMIN D [Concomitant]
     Active Substance: VITAMIN D NOS
     Indication: Product used for unknown indication
     Route: 065
  7. CALCIUM [Concomitant]
     Active Substance: CALCIUM
     Indication: Product used for unknown indication
     Route: 065
  8. RITUXAN HYCELA [Concomitant]
     Active Substance: HYALURONIDASE (HUMAN RECOMBINANT)\RITUXIMAB
  9. TYLENOL [Concomitant]
     Active Substance: ACETAMINOPHEN
  10. IBUPROFEN [Concomitant]
     Active Substance: IBUPROFEN
     Indication: Back pain
  11. IRON [Concomitant]
     Active Substance: IRON
  12. POTASSIUM [Concomitant]
     Active Substance: POTASSIUM
  13. PANTOPRAZOLE SODIUM [Concomitant]
     Active Substance: PANTOPRAZOLE SODIUM
  14. FOLIC ACID [Concomitant]
     Active Substance: FOLIC ACID
  15. MAGNESIUM [Concomitant]
     Active Substance: MAGNESIUM
  16. VITAMIN C [Concomitant]
     Active Substance: ASCORBIC ACID
  17. RISEDRONATE SODIUM [Concomitant]
     Active Substance: RISEDRONATE SODIUM
     Dosage: UNK, QW

REACTIONS (5)
  - Hospitalisation [Unknown]
  - Platelet disorder [Unknown]
  - Infusion site haematoma [Unknown]
  - Infusion site discomfort [Unknown]
  - Infusion site swelling [Unknown]
